FAERS Safety Report 9037900 (Version 1)
Quarter: 2013Q1

REPORT INFORMATION
  Report Type: Spontaneous
  Country: NO (occurrence: NO)
  Receive Date: 20130129
  Receipt Date: 20130129
  Transmission Date: 20140127
  Serious: Yes (Hospitalization)
  Sender: FDA-Public Use
  Company Number: NO-ELI_LILLY_AND_COMPANY-NO201301006815

PATIENT
  Sex: Male
  Weight: 54 kg

DRUGS (2)
  1. ZYPADHERA [Suspect]
     Indication: SCHIZOPHRENIA, PARANOID TYPE
     Dosage: 405 MG, 2/M
     Route: 030
  2. ABILIFY [Concomitant]
     Dosage: 15 MG, UNKNOWN

REACTIONS (2)
  - Malaise [Unknown]
  - Drug ineffective [Unknown]
